FAERS Safety Report 6344105-7 (Version None)
Quarter: 2009Q3

REPORT INFORMATION
  Report Type: 
  Country: None (occurrence: None)
  Receive Date: 20090908
  Receipt Date: 20090901
  Transmission Date: 20100115
  Serious: No
  Sender: FDA-Public Use
  Company Number: US-B.I. PHARMACEUTICALS,INC./RIDGEFIELD-2009-BP-10285BP

PATIENT
  Sex: Female

DRUGS (3)
  1. ALUPENT [Suspect]
     Indication: CHRONIC OBSTRUCTIVE PULMONARY DISEASE
     Dosage: 7.8 MG
     Route: 055
     Dates: start: 20030101, end: 20030101
  2. ATROVENT [Concomitant]
     Indication: CHRONIC OBSTRUCTIVE PULMONARY DISEASE
  3. AZMACORT [Concomitant]
     Indication: CHRONIC OBSTRUCTIVE PULMONARY DISEASE

REACTIONS (3)
  - DYSPNOEA [None]
  - HYPOAESTHESIA FACIAL [None]
  - HYPOAESTHESIA ORAL [None]
